FAERS Safety Report 6308459-X (Version None)
Quarter: 2009Q3

REPORT INFORMATION
  Report Type: 
  Country: None (occurrence: None)
  Receive Date: 20090813
  Receipt Date: 20090805
  Transmission Date: 20100115
  Serious: Yes (Hospitalization)
  Sender: FDA-Public Use
  Company Number: PHHY2009SE33509

PATIENT
  Sex: Male

DRUGS (12)
  1. SANDIMMUNE [Suspect]
     Dosage: 100 MG
  2. CELLCEPT [Concomitant]
  3. PREDNISOLONE [Concomitant]
  4. FOSAMAX [Concomitant]
  5. PAMOL [Concomitant]
  6. OMEPRAZOL [Concomitant]
  7. SIMVASTATIN [Concomitant]
  8. BACTRIM [Concomitant]
  9. EMCONCOR [Concomitant]
  10. CALCICHEW-D3 [Concomitant]
  11. TRADOLAN [Concomitant]
  12. FURIX RETARD [Concomitant]

REACTIONS (6)
  - COUGH [None]
  - FATIGUE [None]
  - MUSCULAR WEAKNESS [None]
  - NASOPHARYNGITIS [None]
  - PULMONARY FUNCTION TEST ABNORMAL [None]
  - RHINORRHOEA [None]
